FAERS Safety Report 8896183 (Version 1)
Quarter: 2012Q4

REPORT INFORMATION
  Report Type: 
  Country: BR (occurrence: BR)
  Receive Date: 20121108
  Receipt Date: 20121108
  Transmission Date: 20130627
  Serious: Yes (Other)
  Sender: FDA-Public Use
  Company Number: PHHY2012BR102297

PATIENT
  Age: 80 Year
  Sex: Male

DRUGS (5)
  1. EXELON [Suspect]
     Indication: DEMENTIA ALZHEIMER^S TYPE
     Dosage: 2 DF, per day
     Route: 048
  2. AAS [Concomitant]
     Dosage: 1 DF, per day
     Route: 048
  3. SIMVASTATIN [Concomitant]
     Indication: BLOOD CHOLESTEROL ABNORMAL
     Dosage: 1 DF, per day
     Route: 048
  4. GARDENAL [Concomitant]
     Indication: EPILEPSY
     Dosage: 1 DF, per day
     Route: 048
  5. TRAVATAN [Concomitant]
     Indication: GLAUCOMA
     Dosage: 1 drop in each eye per day
     Route: 047

REACTIONS (1)
  - Cerebrovascular accident [Recovering/Resolving]
